FAERS Safety Report 20588960 (Version 1)
Quarter: 2022Q1

REPORT INFORMATION
  Report Type: Report from Study
  Country: CA (occurrence: CA)
  Receive Date: 20220314
  Receipt Date: 20220314
  Transmission Date: 20220424
  Serious: Yes (Other)
  Sender: FDA-Public Use
  Company Number: CA-NOVARTISPH-NVSC2022CA056947

PATIENT
  Sex: Female

DRUGS (4)
  1. HYDROCORTISONE [Suspect]
     Active Substance: HYDROCORTISONE
     Indication: Chronic spontaneous urticaria
     Dosage: UNK, PRN
     Route: 061
  2. CLARITIN [Concomitant]
     Active Substance: LORATADINE
     Indication: Product used for unknown indication
     Dosage: 10 MG, QD
     Route: 048
     Dates: start: 201912
  3. BENADRYL [Concomitant]
     Active Substance: DIPHENHYDRAMINE HYDROCHLORIDE
     Indication: Product used for unknown indication
     Dosage: 2 UNK, QD
     Route: 048
     Dates: start: 2019
  4. REACTINE [Concomitant]
     Indication: Product used for unknown indication
     Dosage: UNK, PRN
     Route: 048

REACTIONS (6)
  - Autoimmune disorder [Unknown]
  - Pruritus [Unknown]
  - Urticaria [Unknown]
  - Burning sensation [Unknown]
  - Hypoacusis [Unknown]
  - Skin discomfort [Unknown]
